FAERS Safety Report 10653393 (Version 2)
Quarter: 2015Q1

REPORT INFORMATION
  Report Type: Report from Study
  Country: DE (occurrence: DE)
  Receive Date: 20141215
  Receipt Date: 20150224
  Transmission Date: 20150720
  Serious: Yes (Hospitalization, Disabling)
  Sender: FDA-Public Use
  Company Number: DE-ABBVIE-14K-062-1320435-00

PATIENT
  Age: 40 Year
  Sex: Male

DRUGS (2)
  1. OPIPRAMOL [Concomitant]
     Active Substance: OPIPRAMOL
     Indication: DEPRESSION
     Route: 048
     Dates: start: 201412
  2. HUMIRA [Suspect]
     Active Substance: ADALIMUMAB
     Indication: CROHN^S DISEASE
     Route: 058
     Dates: start: 20120514

REACTIONS (2)
  - Rehabilitation therapy [Recovered/Resolved]
  - Faecal calprotectin increased [Unknown]

NARRATIVE: CASE EVENT DATE: 20141127
